FAERS Safety Report 10634206 (Version 1)
Quarter: 2014Q4

REPORT INFORMATION
  Report Type: Spontaneous
  Country: US (occurrence: None)
  Receive Date: 20141203
  Receipt Date: 20141203
  Transmission Date: 20150529
  Serious: Yes (Life-Threatening)
  Sender: FDA-Public Use
  Company Number: US-PULSION-2014-0064

PATIENT
  Sex: Female

DRUGS (1)
  1. ICG-PULSION [Suspect]
     Active Substance: INDOCYANINE GREEN
     Dosage: BOLUS
     Dates: start: 20140916

REACTIONS (1)
  - Anaphylactic reaction [None]

NARRATIVE: CASE EVENT DATE: 20140916
